FAERS Safety Report 4777488-X (Version None)
Quarter: 2005Q3

REPORT INFORMATION
  Report Type: 
  Country: None (occurrence: None)
  Receive Date: 20050915
  Receipt Date: 20050907
  Transmission Date: 20060218
  Serious: Yes (Death, Other)
  Sender: FDA-Public Use
  Company Number: 2005-02737

PATIENT
  Sex: 0

DRUGS (1)
  1. BACLOFEN [Suspect]
     Dosage: 100 MG, BID

REACTIONS (1)
  - COMA [None]
